FAERS Safety Report 6601270-1 (Version None)
Quarter: 2010Q1

REPORT INFORMATION
  Report Type: 
  Country: None (occurrence: None)
  Receive Date: 20100225
  Receipt Date: 20100216
  Transmission Date: 20100710
  Serious: Yes (Other)
  Sender: FDA-Public Use
  Company Number: US-PFIZER INC-2010020448

PATIENT
  Sex: Female
  Weight: 112 kg

DRUGS (4)
  1. GENOTROPIN [Suspect]
     Indication: GROWTH HORMONE DEFICIENCY
  2. SYNTHROID [Concomitant]
     Dosage: UNK
  3. LASIX [Concomitant]
     Dosage: 4 MG, UNK
  4. PROZAC [Concomitant]
     Dosage: 80 MG, DAILY

REACTIONS (4)
  - ARTHRALGIA [None]
  - HYPERTENSION [None]
  - PAIN [None]
  - WEIGHT INCREASED [None]
